FAERS Safety Report 16758094 (Version 9)
Quarter: 2020Q2

REPORT INFORMATION
  Report Type: Report from Study
  Country: US (occurrence: US)
  Receive Date: 20190830
  Receipt Date: 20200618
  Transmission Date: 20200713
  Serious: Yes (Other)
  Sender: FDA-Public Use
  Company Number: US-TEVA-2019-US-1101558

PATIENT
  Age: 30 Year
  Sex: Female

DRUGS (2)
  1. CLARAVIS [Suspect]
     Active Substance: ISOTRETINOIN
     Route: 065
     Dates: start: 20190819, end: 201909
  2. CLARAVIS [Suspect]
     Active Substance: ISOTRETINOIN
     Route: 065
     Dates: start: 20190308, end: 20190825

REACTIONS (2)
  - Gestational trophoblastic tumour [Recovered/Resolved]
  - Pregnancy test false positive [Unknown]

NARRATIVE: CASE EVENT DATE: 20190913
